FAERS Safety Report 21548740 (Version 1)
Quarter: 2022Q4

REPORT INFORMATION
  Report Type: Spontaneous
  Country: US (occurrence: None)
  Receive Date: 20221102
  Receipt Date: 20221102
  Transmission Date: 20230113
  Serious: No
  Sender: FDA-Public Use
  Company Number: None

PATIENT
  Age: 62 Year
  Sex: Female
  Weight: 73.35 kg

DRUGS (19)
  1. ASTEPRO [Suspect]
     Active Substance: AZELASTINE HYDROCHLORIDE
     Indication: Hypersensitivity
     Dosage: OTHER QUANTITY : 2 SPRAY(S);?FREQUENCY : TWICE A DAY;?OTHER ROUTE : NASAL SPRAY;?
     Route: 050
     Dates: start: 20221102, end: 20221102
  2. CYMBALTA [Concomitant]
     Active Substance: DULOXETINE HYDROCHLORIDE
  3. METFORMIN [Concomitant]
     Active Substance: METFORMIN HYDROCHLORIDE
  4. OZEMPIC [Concomitant]
     Active Substance: SEMAGLUTIDE
  5. INSULIN NOS [Concomitant]
     Active Substance: INSULIN NOS
  6. LISINOPRIL [Concomitant]
     Active Substance: LISINOPRIL
  7. PYRIDOSTIGMINE [Concomitant]
     Active Substance: PYRIDOSTIGMINE
  8. OMEPRAZOLE [Concomitant]
     Active Substance: OMEPRAZOLE
  9. ATORVASTATIN [Concomitant]
     Active Substance: ATORVASTATIN
  10. TEMAZEPAM [Concomitant]
     Active Substance: TEMAZEPAM
  11. HYDROXYZINE [Concomitant]
     Active Substance: HYDROXYZINE HYDROCHLORIDE
  12. Bard PowerPort [Concomitant]
  13. one touch glucose meter [Concomitant]
  14. strips and lancets [Concomitant]
  15. Zofran [Concomitant]
  16. FAMOTIDINE [Concomitant]
     Active Substance: FAMOTIDINE
  17. VITAMINS [Concomitant]
     Active Substance: VITAMINS
  18. CALCIUM CARBONATE\CHOLECALCIFEROL [Concomitant]
     Active Substance: CALCIUM CARBONATE\CHOLECALCIFEROL
  19. Advil Dual-action [Concomitant]

REACTIONS (2)
  - Oral discomfort [None]
  - Throat irritation [None]

NARRATIVE: CASE EVENT DATE: 20221102
